FAERS Safety Report 6912884-3 (Version None)
Quarter: 2010Q3

REPORT INFORMATION
  Report Type: 
  Country: None (occurrence: None)
  Receive Date: 20100806
  Receipt Date: 20090305
  Transmission Date: 20110219
  Serious: Yes (Hospitalization)
  Sender: FDA-Public Use
  Company Number: US-PFIZER INC-2009163065

PATIENT
  Sex: Female
  Weight: 90.703 kg

DRUGS (6)
  1. DETROL LA [Suspect]
     Indication: HYPERTONIC BLADDER
     Dates: start: 20090120, end: 20090128
  2. LOPID [Concomitant]
  3. PLAQUINOL [Concomitant]
  4. BENICAR [Concomitant]
  5. ACETYLSALICYLIC ACID [Concomitant]
  6. VITAMIN TAB [Concomitant]

REACTIONS (3)
  - DRY MOUTH [None]
  - URINARY RETENTION [None]
  - URINARY TRACT INFECTION [None]
